FAERS Safety Report 19562665 (Version 9)
Quarter: 2022Q4

REPORT INFORMATION
  Report Type: Report from Study
  Country: AU (occurrence: AU)
  Receive Date: 20210716
  Receipt Date: 20221020
  Transmission Date: 20230113
  Serious: Yes (Hospitalization)
  Sender: FDA-Public Use
  Company Number: NVSC2021AU141851

PATIENT
  Age: 78 Year
  Sex: Male
  Weight: 94.45 kg

DRUGS (17)
  1. NAPORAFENIB [Suspect]
     Active Substance: NAPORAFENIB
     Indication: Malignant melanoma
     Dosage: 400 MG, BID
     Route: 048
     Dates: start: 20210521, end: 20210623
  2. TRAMETINIB [Suspect]
     Active Substance: TRAMETINIB
     Indication: Malignant melanoma
     Dosage: 0.5 MG, QD
     Route: 048
     Dates: start: 20210521, end: 20210623
  3. LINAGLIPTIN [Concomitant]
     Active Substance: LINAGLIPTIN
     Indication: Type 2 diabetes mellitus
     Dosage: UNK
     Route: 065
     Dates: start: 20210201, end: 20210722
  4. ASPIRIN [Concomitant]
     Active Substance: ASPIRIN
     Indication: Atrial fibrillation
     Dosage: UNK
     Route: 065
     Dates: start: 20200801, end: 20210722
  5. MAGNESIUM [Concomitant]
     Active Substance: MAGNESIUM
     Indication: Muscle spasms
     Dosage: UNK
     Route: 065
     Dates: start: 20190301, end: 20210722
  6. TEMAZEPAM [Concomitant]
     Active Substance: TEMAZEPAM
     Indication: Insomnia
     Dosage: UNK
     Route: 065
     Dates: start: 20210301, end: 20210722
  7. DOXYCYCLINE [Concomitant]
     Active Substance: DOXYCYCLINE
     Indication: Rash
     Dosage: UNK
     Route: 065
     Dates: start: 20210521, end: 20210627
  8. BETAMETHASONE [Concomitant]
     Active Substance: BETAMETHASONE
     Indication: Dermatitis acneiform
     Dosage: UNK
     Route: 065
     Dates: start: 20210618, end: 20210722
  9. PENICILLIN G SODIUM [Concomitant]
     Active Substance: PENICILLIN G SODIUM
     Indication: Upper respiratory tract infection
     Dosage: UNK
     Route: 065
     Dates: start: 20210524, end: 20210629
  10. THYROXINE [Concomitant]
     Active Substance: LEVOTHYROXINE
     Indication: Hypothyroidism
     Dosage: UNK
     Route: 065
     Dates: start: 20190701, end: 20210722
  11. PREDNISONE [Concomitant]
     Active Substance: PREDNISONE
     Indication: Upper respiratory tract infection
     Dosage: UNK
     Route: 065
     Dates: start: 20210523, end: 20210629
  12. ALBUTEROL [Concomitant]
     Active Substance: ALBUTEROL
     Indication: Upper respiratory tract infection
     Dosage: UNK
     Dates: start: 20210523, end: 20210629
  13. CLOPIDOGREL [Concomitant]
     Active Substance: CLOPIDOGREL BISULFATE
     Indication: Atrial fibrillation
     Dosage: UNK
     Route: 065
     Dates: start: 20200801, end: 20210722
  14. DUTASTERIDE\TAMSULOSIN [Concomitant]
     Active Substance: DUTASTERIDE\TAMSULOSIN
     Indication: Benign prostatic hyperplasia
     Dosage: UNK
     Route: 065
     Dates: start: 20170701, end: 20210627
  15. METOPROLOL [Concomitant]
     Active Substance: METOPROLOL
     Indication: Atrial fibrillation
     Dosage: UNK
     Route: 065
     Dates: start: 20190711, end: 20210722
  16. FOLIC ACID [Concomitant]
     Active Substance: FOLIC ACID
     Indication: Atrial fibrillation
     Dosage: UNK
     Route: 065
     Dates: start: 20200301, end: 20210722
  17. METHOTREXATE [Concomitant]
     Active Substance: METHOTREXATE
     Indication: Osteoarthritis
     Dosage: UNK
     Route: 065
     Dates: start: 20200301, end: 20210722

REACTIONS (2)
  - Enteritis infectious [Recovering/Resolving]
  - Pyrexia [Recovered/Resolved]

NARRATIVE: CASE EVENT DATE: 20210623
